FAERS Safety Report 11130566 (Version 2)
Quarter: 2015Q2

REPORT INFORMATION
  Report Type: Spontaneous
  Country: US (occurrence: None)
  Receive Date: 20150520
  Receipt Date: 20150601
  Transmission Date: 20150821
  Serious: Yes (Death, Hospitalization)
  Sender: FDA-Public Use
  Company Number: INS201505-000198

PATIENT
  Sex: Male
  Weight: 73.93 kg

DRUGS (21)
  1. ALLOPURINOL. [Concomitant]
     Active Substance: ALLOPURINOL
  2. DEXILANT [Concomitant]
     Active Substance: DEXLANSOPRAZOLE
  3. LEVOTHYROXINE [Concomitant]
     Active Substance: LEVOTHYROXINE
  4. POTASSIUM CHLORIDE. [Concomitant]
     Active Substance: POTASSIUM CHLORIDE
  5. TRILIPIX (FENOFIBRIC ACID) [Concomitant]
  6. DURAGESIC (FENTANYL) [Concomitant]
  7. EXFORGE (AMLODIPINE, VALSARTAN) [Concomitant]
  8. GABAPENTIN. [Concomitant]
     Active Substance: GABAPENTIN
  9. METOPROLOL SUCCINATE ER [Concomitant]
     Active Substance: METOPROLOL SUCCINATE
  10. TEMAZEPAM. [Concomitant]
     Active Substance: TEMAZEPAM
  11. HYDROCODONE/IBUPROFEN [Concomitant]
     Active Substance: HYDROCODONE\IBUPROFEN
  12. MAGNESIUM [Concomitant]
     Active Substance: MAGNESIUM
  13. MEGESTROL [Concomitant]
     Active Substance: MEGESTROL
  14. METOCLOPRAMIDE. [Concomitant]
     Active Substance: METOCLOPRAMIDE
  15. ONDANSETRON [Concomitant]
     Active Substance: ONDANSETRON
  16. STIVARGA (REGORAFENIB) [Concomitant]
  17. LIDOCAINE. [Concomitant]
     Active Substance: LIDOCAINE
  18. TRAMADOL [Concomitant]
     Active Substance: TRAMADOL
  19. SUBSYS [Suspect]
     Active Substance: FENTANYL
     Indication: BREAKTHROUGH PAIN
     Dosage: 1 SPRAY 4-6 TIMES PER DAY
     Dates: start: 20140716, end: 20150208
  20. LOMOTIL (DIPHENOXYLATE, ATROPINE) [Concomitant]
  21. VITAMIN B12 [Concomitant]
     Active Substance: CYANOCOBALAMIN

REACTIONS (4)
  - Colon cancer [None]
  - Malnutrition [None]
  - Metastases to liver [None]
  - Death [None]
